FAERS Safety Report 7120536-2 (Version None)
Quarter: 2010Q4

REPORT INFORMATION
  Report Type: 
  Country: None (occurrence: None)
  Receive Date: 20101122
  Receipt Date: 20101122
  Transmission Date: 20110411
  Serious: Yes (Other)
  Sender: FDA-Public Use
  Company Number: None

PATIENT
  Age: 27 Year
  Sex: Female
  Weight: 99.7913 kg

DRUGS (1)
  1. MONISTAT [Suspect]
     Indication: FUNGAL INFECTION
     Dosage: SINGLE DOSE ONCE VAG
     Route: 067
     Dates: start: 20101121, end: 20101121

REACTIONS (2)
  - DIZZINESS [None]
  - HYPERSENSITIVITY [None]
